FAERS Safety Report 9152637 (Version 1)
Quarter: 2013Q1

REPORT INFORMATION
  Report Type: Spontaneous
  Country: GB (occurrence: GB)
  Receive Date: 20130308
  Receipt Date: 20130308
  Transmission Date: 20140127
  Serious: Yes (Hospitalization, Other)
  Sender: FDA-Public Use
  Company Number: GB-ASTRAZENECA-2013SE13398

PATIENT
  Age: 20 Year
  Sex: Female

DRUGS (2)
  1. OMEPRAZOLE [Suspect]
     Route: 048
     Dates: start: 20130128
  2. GAVISCON [Concomitant]
     Route: 065

REACTIONS (3)
  - Exposure during pregnancy [Unknown]
  - Stillbirth [Unknown]
  - Vaginal haemorrhage [Unknown]
